FAERS Safety Report 13800870 (Version 9)
Quarter: 2019Q2

REPORT INFORMATION
  Report Type: Report from Study
  Country: DE (occurrence: DE)
  Receive Date: 20170727
  Receipt Date: 20190503
  Transmission Date: 20190711
  Serious: Yes (Hospitalization, Other)
  Sender: FDA-Public Use
  Company Number: DE-ROCHE-1952185

PATIENT
  Age: 67 Year
  Sex: Female
  Weight: 70 kg

DRUGS (24)
  1. NOVALGIN (METAMIZOLE SODIUM) [Concomitant]
     Active Substance: METAMIZOLE SODIUM
     Indication: ARTHRALGIA
     Route: 048
     Dates: start: 20170524
  2. IBUPROFEN. [Concomitant]
     Active Substance: IBUPROFEN
     Indication: PAIN IN EXTREMITY
     Route: 065
     Dates: end: 20170414
  3. CLEXANE [Concomitant]
     Active Substance: ENOXAPARIN SODIUM
     Indication: THROMBOSIS PROPHYLAXIS
     Route: 058
     Dates: start: 20170505, end: 20170519
  4. PANTOPRAZOL [PANTOPRAZOLE] [Concomitant]
     Active Substance: PANTOPRAZOLE
     Indication: PROPHYLAXIS
     Route: 048
     Dates: start: 20170615, end: 20170705
  5. ADVANTAN [Concomitant]
     Active Substance: METHYLPREDNISOLONE ACEPONATE
     Indication: SUNBURN
     Route: 061
     Dates: start: 20170524
  6. UNACID [AMPICILLIN SODIUM;SULBACTAM SODIUM] [Concomitant]
     Active Substance: AMPICILLIN SODIUM\SULBACTAM SODIUM
     Indication: INFLAMMATION
     Route: 042
     Dates: start: 20170619, end: 20170629
  7. COBIMETINIB. [Suspect]
     Active Substance: COBIMETINIB
     Indication: MALIGNANT MELANOMA
     Dosage: COBIMETINIB 60 MG (THREE, 20 MG TABLETS) PO ONCE A DAY (QD) ON DAYS 1 TO 21 AS PER PROTOCOL?DATE OF
     Route: 048
     Dates: start: 20170407
  8. VEMURAFENIB. [Suspect]
     Active Substance: VEMURAFENIB
     Indication: MALIGNANT MELANOMA
     Dosage: FOUR TABLETS TWICE A DAY FROM DAY 1 TO DAY 21, AS PER PROTOCOL?DATE OF MOST RECENT DOSE OF VEMURAFEN
     Route: 048
     Dates: start: 20170406
  9. TILIDIN [Concomitant]
     Active Substance: NALOXONE HYDROCHLORIDE\TILIDINE HYDROCHLORIDE
     Indication: PAIN IN EXTREMITY
     Route: 048
     Dates: start: 20170414, end: 20170517
  10. TILIDIN [Concomitant]
     Active Substance: NALOXONE HYDROCHLORIDE\TILIDINE HYDROCHLORIDE
     Route: 048
     Dates: start: 20170518
  11. TOREM [TORASEMIDE] [Concomitant]
     Active Substance: TORSEMIDE
     Indication: DIASTOLIC DYSFUNCTION
     Route: 048
     Dates: start: 20170619
  12. KALIUM VERLA [Concomitant]
     Active Substance: POTASSIUM CITRATE
     Route: 048
     Dates: start: 20170619
  13. DAIVOBET [Concomitant]
     Active Substance: BETAMETHASONE DIPROPIONATE\CALCIPOTRIENE
     Indication: ONYCHOMYCOSIS
     Route: 061
     Dates: start: 201707
  14. PLACEBO [Suspect]
     Active Substance: UNSPECIFIED INGREDIENT
     Indication: MALIGNANT MELANOMA
     Dosage: DATE OF MOST RECENT DOSE OF PLACEBO PRIOR TO SAE (HYPERTHYROIDISM) ONSET: 17/MAY/2017?DATE OF MOST R
     Route: 042
     Dates: start: 20170517
  15. AMITRIPTYLINE [Concomitant]
     Active Substance: AMITRIPTYLINE
     Indication: DEPRESSION
     Route: 048
     Dates: start: 20170524
  16. NALOXON [Concomitant]
     Active Substance: NALOXONE HYDROCHLORIDE
     Indication: ERYSIPELAS
     Route: 048
     Dates: start: 20170518
  17. TILIDIN [Concomitant]
     Active Substance: NALOXONE HYDROCHLORIDE\TILIDINE HYDROCHLORIDE
     Indication: ANALGESIC THERAPY
     Route: 048
     Dates: start: 20170518
  18. AMITRIPTYLINE [Concomitant]
     Active Substance: AMITRIPTYLINE
     Indication: PAIN
  19. RAMIPRIL. [Concomitant]
     Active Substance: RAMIPRIL
     Indication: HYPERTENSION
     Route: 048
     Dates: start: 20170619
  20. NOVALGIN (METAMIZOLE SODIUM) [Concomitant]
     Active Substance: METAMIZOLE SODIUM
     Route: 048
     Dates: start: 20170518
  21. FRAGMIN [Concomitant]
     Active Substance: DALTEPARIN SODIUM
     Indication: THROMBOSIS PROPHYLAXIS
     Route: 058
     Dates: start: 20170615, end: 20170705
  22. NALOXONE HYDROCHLORIDE. [Concomitant]
     Active Substance: NALOXONE HYDROCHLORIDE
     Indication: PAIN IN EXTREMITY
     Route: 048
     Dates: start: 20170414
  23. OXYGEN. [Concomitant]
     Active Substance: OXYGEN
     Indication: DYSPNOEA
     Route: 055
     Dates: start: 20170619, end: 20170619
  24. PHENOXYMETHYLPENICILLINUM KALICUM [Concomitant]
     Indication: INFLAMMATION
     Route: 042
     Dates: start: 20170615, end: 20170629

REACTIONS (4)
  - Erysipelas [Recovered/Resolved]
  - Electrocardiogram QT prolonged [Recovered/Resolved]
  - Erysipelas [Recovered/Resolved]
  - Hyperthyroidism [Recovered/Resolved]

NARRATIVE: CASE EVENT DATE: 20170504
